FAERS Safety Report 14310411 (Version 2)
Quarter: 2017Q4

REPORT INFORMATION
  Report Type: Spontaneous
  Country: US (occurrence: US)
  Receive Date: 20171220
  Receipt Date: 20171227
  Transmission Date: 20180321
  Serious: Yes (Hospitalization, Other)
  Sender: FDA-Public Use
  Company Number: US-ELI_LILLY_AND_COMPANY-US201712008675

PATIENT
  Age: 73 Year
  Sex: Male

DRUGS (4)
  1. LEVEMIR [Concomitant]
     Active Substance: INSULIN DETEMIR
     Indication: TYPE 2 DIABETES MELLITUS
     Dosage: 70 U, DAILY
  2. HUMULIN R [Suspect]
     Active Substance: INSULIN HUMAN
     Indication: PRODUCT USED FOR UNKNOWN INDICATION
     Route: 065
  3. HUMULIN R [Suspect]
     Active Substance: INSULIN HUMAN
     Indication: PRODUCT USED FOR UNKNOWN INDICATION
     Dosage: UNK, PRN
     Route: 058
  4. HUMULIN R [Suspect]
     Active Substance: INSULIN HUMAN
     Dosage: UNK, PRN
     Route: 058

REACTIONS (15)
  - Neoplasm malignant [Unknown]
  - Blood glucose decreased [Recovered/Resolved]
  - Pain in extremity [Unknown]
  - Thrombosis [Recovered/Resolved]
  - Hypoglycaemia [Recovered/Resolved]
  - Back pain [Not Recovered/Not Resolved]
  - Nausea [Unknown]
  - Pain in extremity [Recovered/Resolved]
  - Incorrect dose administered [Recovered/Resolved]
  - Hepatic neoplasm [Not Recovered/Not Resolved]
  - Blood glucose increased [Recovered/Resolved]
  - Decreased appetite [Unknown]
  - Pancreatic neoplasm [Not Recovered/Not Resolved]
  - Pulmonary embolism [Recovered/Resolved]
  - Malaise [Unknown]

NARRATIVE: CASE EVENT DATE: 20171122
